FAERS Safety Report 4469014-X (Version None)
Quarter: 2004Q4

REPORT INFORMATION
  Report Type: 
  Country: None (occurrence: None)
  Receive Date: 20041008
  Receipt Date: 20040923
  Transmission Date: 20050328
  Serious: Yes (Death, Other)
  Sender: FDA-Public Use
  Company Number: US-JNJFOC-20041001807

PATIENT
  Sex: Female

DRUGS (3)
  1. DOXIL [Suspect]
     Indication: BREAST CANCER
     Route: 042
  2. HERCEPTIN [Suspect]
     Indication: BREAST CANCER
  3. RADIATION THERAPY [Suspect]
     Indication: BREAST CANCER

REACTIONS (5)
  - MALIGNANT NEOPLASM PROGRESSION [None]
  - PLEURITIC PAIN [None]
  - RADIATION PNEUMONITIS [None]
  - SKIN DESQUAMATION [None]
  - SKIN TOXICITY [None]
